FAERS Safety Report 21564781 (Version 2)
Quarter: 2022Q4

REPORT INFORMATION
  Report Type: Spontaneous
  Country: US (occurrence: US)
  Receive Date: 20221108
  Receipt Date: 20221222
  Transmission Date: 20230113
  Serious: Yes (Other)
  Sender: FDA-Public Use
  Company Number: US-BRISTOL-MYERS SQUIBB COMPANY-2022-132191

PATIENT
  Age: 72 Year
  Sex: Female
  Weight: 97.07 kg

DRUGS (2)
  1. LENALIDOMIDE [Suspect]
     Active Substance: LENALIDOMIDE
     Indication: Myelodysplastic syndrome
     Dosage: ONE CAPSULE DAILY BY MOUTH
     Route: 048
     Dates: start: 20210407
  2. LENALIDOMIDE [Suspect]
     Active Substance: LENALIDOMIDE
     Dosage: ONE CAPSULE DAILY BY MOUTH
     Route: 048

REACTIONS (1)
  - Thrombocytopenia [Unknown]
